FAERS Safety Report 8464295-X (Version None)
Quarter: 2012Q2

REPORT INFORMATION
  Report Type: 
  Country: None (occurrence: None)
  Receive Date: 20120625
  Receipt Date: 20120613
  Transmission Date: 20120825
  Serious: Yes (Hospitalization)
  Sender: FDA-Public Use
  Company Number: US-GILEAD-2012-0056187

PATIENT
  Sex: Female

DRUGS (15)
  1. NORVASC [Concomitant]
     Dosage: 5MG PER DAY
     Route: 048
     Dates: start: 20100624, end: 20120529
  2. MINOXIDIL [Concomitant]
     Indication: HYPERTENSION
     Dosage: 2.5MG TWICE PER DAY
     Route: 048
     Dates: start: 20100624, end: 20120529
  3. FRUSEMIDE                          /00032601/ [Concomitant]
     Dosage: UNK
     Dates: start: 20120419, end: 20120528
  4. METOPROLOL TARTRATE [Concomitant]
     Indication: HYPERTENSION
     Dosage: 25MG TWICE PER DAY
     Route: 048
     Dates: start: 20100624, end: 20120530
  5. PLACEBO [Suspect]
     Indication: PULMONARY ARTERIAL HYPERTENSION
     Dosage: UNK
     Route: 048
     Dates: start: 20120116, end: 20120529
  6. METOPROLOL [Concomitant]
  7. CANDESARTAN CILEXETIL [Concomitant]
     Indication: HYPERTENSION
     Dosage: 32MG PER DAY
     Route: 048
     Dates: start: 20100709, end: 20120528
  8. CALCIUM VITAMIN D [Concomitant]
  9. NORVASC [Concomitant]
     Indication: HYPERTENSION
     Dosage: UNK
     Dates: end: 20120524
  10. DITROPAN [Concomitant]
  11. VIT B COMPLEX [Concomitant]
  12. GLUCOSAMINE CHONDROITIN            /01430901/ [Concomitant]
  13. LETAIRIS [Suspect]
     Indication: PULMONARY ARTERIAL HYPERTENSION
     Dosage: 10MG PER DAY
     Route: 048
     Dates: start: 20120116, end: 20120529
  14. ATACAND [Concomitant]
  15. NEXIUM [Concomitant]

REACTIONS (7)
  - RENAL FAILURE [None]
  - METABOLIC ACIDOSIS [None]
  - HYPERKALAEMIA [None]
  - MITRAL VALVE INCOMPETENCE [None]
  - TRICUSPID VALVE INCOMPETENCE [None]
  - PULMONARY VALVE INCOMPETENCE [None]
  - LEFT VENTRICULAR HYPERTROPHY [None]
